FAERS Safety Report 21057413 (Version 1)
Quarter: 2022Q3

REPORT INFORMATION
  Report Type: Report from Study
  Country: US (occurrence: US)
  Receive Date: 20220708
  Receipt Date: 20220708
  Transmission Date: 20221027
  Serious: Yes (Hospitalization)
  Sender: FDA-Public Use
  Company Number: US-PFIZER INC-2021021959

PATIENT
  Age: 55 Year
  Sex: Female
  Weight: 74.6 kg

DRUGS (3)
  1. ABROCITINIB [Suspect]
     Active Substance: ABROCITINIB
     Indication: Dermatitis atopic
     Dosage: 100 MG, DAILY
     Route: 048
     Dates: start: 20190813, end: 20210110
  2. LEVOTHYROXINE [Concomitant]
     Active Substance: LEVOTHYROXINE
     Indication: Hypothyroidism
     Dosage: 0.05 MG, QD
     Route: 048
     Dates: start: 2016
  3. CETAPHIL [DIMETICONE;GLYCEROL] [Concomitant]
     Indication: Dermatitis atopic
     Dosage: 1 APP, 2X/DAY
     Route: 061
     Dates: start: 2016

REACTIONS (2)
  - Cellulitis [Recovered/Resolved]
  - Dermatitis contact [Recovered/Resolved]

NARRATIVE: CASE EVENT DATE: 20201023
